FAERS Safety Report 9271264 (Version 1)
Quarter: 2013Q2

REPORT INFORMATION
  Report Type: Spontaneous
  Country: US (occurrence: US)
  Receive Date: 20130506
  Receipt Date: 20130506
  Transmission Date: 20140414
  Serious: Yes (Congenital Anomaly, Other)
  Sender: FDA-Public Use
  Company Number: US-ELI_LILLY_AND_COMPANY-US201304008030

PATIENT
  Sex: Female

DRUGS (4)
  1. PROZAC [Suspect]
     Dosage: 10 MG, UNKNOWN
     Route: 064
  2. PROZAC [Suspect]
     Dosage: 20 MG, UNKNOWN
     Route: 064
  3. NATALCARE [Concomitant]
     Dosage: 1 DF, UNKNOWN
     Route: 064
  4. TRIPLE SULFA CREAM [Concomitant]
     Dosage: 1 DF, UNKNOWN
     Route: 064

REACTIONS (4)
  - Pulmonary artery stenosis congenital [Unknown]
  - Congenital mitral valve incompetence [Unknown]
  - Cardiac murmur [Unknown]
  - Foetal exposure during pregnancy [Unknown]
